FAERS Safety Report 12109839 (Version 1)
Quarter: 2016Q1

REPORT INFORMATION
  Report Type: Spontaneous
  Country: US (occurrence: None)
  Receive Date: 20160222
  Receipt Date: 20160222
  Transmission Date: 20160526
  Serious: Yes (Other)
  Sender: FDA-Public Use
  Company Number: None

PATIENT
  Age: 62 Year
  Sex: Female
  Weight: 68.04 kg

DRUGS (6)
  1. LAMICTAL [Concomitant]
     Active Substance: LAMOTRIGINE
  2. XANAX XR [Concomitant]
     Active Substance: ALPRAZOLAM
  3. TRILEPTAL [Concomitant]
     Active Substance: OXCARBAZEPINE
  4. SAPHRIS [Suspect]
     Active Substance: ASENAPINE MALEATE
     Indication: BIPOLAR II DISORDER
     Dosage: 10MG 1 TAB QPM SL
     Route: 060
     Dates: start: 20160209, end: 20160211
  5. TRINTELLIX [Concomitant]
     Active Substance: VORTIOXETINE HYDROBROMIDE
  6. SAPHRIS [Suspect]
     Active Substance: ASENAPINE MALEATE
     Indication: HYPOMANIA
     Dosage: 10MG 1 TAB QPM SL
     Route: 060
     Dates: start: 20160209, end: 20160211

REACTIONS (1)
  - Akathisia [None]

NARRATIVE: CASE EVENT DATE: 20160212
